FAERS Safety Report 4290339-5 (Version None)
Quarter: 2004Q1

REPORT INFORMATION
  Report Type: 
  Country: None (occurrence: None)
  Receive Date: 20040209
  Receipt Date: 20040128
  Transmission Date: 20041129
  Serious: Yes (Other)
  Sender: FDA-Public Use
  Company Number: NSADSS2002026186

PATIENT
  Age: 28 Year
  Sex: Female
  Weight: 50.8029 kg

DRUGS (6)
  1. REMICADE [Suspect]
     Indication: CROHN'S DISEASE
     Dosage: 255 MG, 1 IN 1 AS NECESSARY, INTRAVENOUS DRIP
     Route: 041
     Dates: start: 19980101, end: 19980101
  2. REMICADE [Suspect]
     Indication: CROHN'S DISEASE
     Dosage: 255 MG, 1 IN 1 AS NECESSARY, INTRAVENOUS DRIP
     Route: 041
     Dates: start: 20020621, end: 20020621
  3. REMICADE [Suspect]
     Indication: CROHN'S DISEASE
     Dosage: 255 MG, 1 IN 1 AS NECESSARY, INTRAVENOUS DRIP
     Route: 041
     Dates: start: 20020802, end: 20020802
  4. LEVAQUIN [Concomitant]
  5. TYLENOL W/ CODEINE NO. 3 [Concomitant]
  6. ALLEGRA [Concomitant]

REACTIONS (4)
  - CHEST DISCOMFORT [None]
  - FLUSHING [None]
  - INFUSION RELATED REACTION [None]
  - RESPIRATORY DISTRESS [None]
